FAERS Safety Report 6787662-9 (Version None)
Quarter: 2010Q2

REPORT INFORMATION
  Report Type: 
  Country: None (occurrence: None)
  Receive Date: 20100621
  Receipt Date: 20090402
  Transmission Date: 20101027
  Serious: Yes (Hospitalization)
  Sender: FDA-Public Use
  Company Number: LEO-2010-00508

PATIENT
  Age: 42 Year
  Sex: Female
  Weight: 100 kg

DRUGS (3)
  1. INNOHEP [Suspect]
     Indication: THROMBOSIS PROPHYLAXIS
     Dosage: 4500 IU (4500 IU, 1 IN 1 D)
  2. ASPIRIN [Concomitant]
  3. TRANDATE [Concomitant]

REACTIONS (4)
  - ABORTION SPONTANEOUS [None]
  - DRUG EXPOSURE DURING PREGNANCY [None]
  - OFF LABEL USE [None]
  - PREMATURE RUPTURE OF MEMBRANES [None]
